FAERS Safety Report 7464570-1 (Version None)
Quarter: 2011Q2

REPORT INFORMATION
  Report Type: 
  Country: None (occurrence: None)
  Receive Date: 20110509
  Receipt Date: 20110429
  Transmission Date: 20111010
  Serious: Yes (Other)
  Sender: FDA-Public Use
  Company Number: US-PFIZER INC-2011093148

PATIENT
  Sex: Female
  Weight: 56.689 kg

DRUGS (5)
  1. SOMA [Concomitant]
     Indication: POLYMYALGIA RHEUMATICA
     Dosage: UNK
  2. SYNTHROID [Concomitant]
     Indication: THYROID DISORDER
     Dosage: UNK
  3. ACETYLSALICYLIC ACID [Concomitant]
     Dosage: UNK
  4. EXEMESTANE [Suspect]
     Indication: BREAST CANCER METASTATIC
     Dosage: UNK
     Dates: start: 20110424
  5. AROMASIN [Suspect]
     Indication: BREAST CANCER METASTATIC
     Dosage: 25 MG, DAILY
     Route: 048
     Dates: start: 20100101, end: 20110423

REACTIONS (6)
  - ARTHRALGIA [None]
  - FATIGUE [None]
  - PAIN [None]
  - MYALGIA [None]
  - ABDOMINAL DISCOMFORT [None]
  - MALAISE [None]
